FAERS Safety Report 17716007 (Version 1)
Quarter: 2020Q2

REPORT INFORMATION
  Report Type: Spontaneous
  Country: IE (occurrence: IE)
  Receive Date: 20200428
  Receipt Date: 20200428
  Transmission Date: 20200714
  Serious: Yes (Other)
  Sender: FDA-Public Use
  Company Number: IE-TEVA-2020-IE-1226864

PATIENT
  Age: 43 Year
  Sex: Female
  Weight: 105 kg

DRUGS (2)
  1. DOXYCYCLINE (GENERIC) [Suspect]
     Active Substance: DOXYCYCLINE
     Indication: SINUSITIS
     Dosage: 2 X TABLETS ON FIRST DAY, THEN 1 FOR 8 DAYS (6 DAYS OF TREATMENT COMPLETED), 100 MG
     Route: 048
     Dates: start: 20200325, end: 20200331
  2. PARACETAMOL [Concomitant]
     Active Substance: ACETAMINOPHEN
     Indication: SINUS PAIN
     Dosage: 2 TABLETS UP TO 4 TIMES PER DAY
     Dates: start: 20200325, end: 20200331

REACTIONS (11)
  - Vomiting [Recovered/Resolved]
  - Diarrhoea [Recovered/Resolved]
  - Headache [Recovered/Resolved]
  - Dyspepsia [Recovered/Resolved]
  - Dysgeusia [Recovered/Resolved]
  - Abdominal pain [Recovered/Resolved]
  - Pain in extremity [Recovered/Resolved]
  - Nausea [Recovered/Resolved]
  - Insomnia [Recovered/Resolved]
  - Vulvovaginal pain [Recovered/Resolved]
  - Ageusia [Recovering/Resolving]
